FAERS Safety Report 7785597-6 (Version None)
Quarter: 2011Q3

REPORT INFORMATION
  Report Type: 
  Country: None (occurrence: None)
  Receive Date: 20110929
  Receipt Date: 20110919
  Transmission Date: 20111222
  Serious: Yes (Hospitalization, Other)
  Sender: FDA-Public Use
  Company Number: US-BAYER-2011-019412

PATIENT
  Age: 32 Year
  Sex: Female
  Weight: 73.469 kg

DRUGS (6)
  1. DROSPIRENONE AND ETHINYL ESTRADIOL [Suspect]
     Indication: MENSTRUATION IRREGULAR
     Dosage: UNK
     Dates: start: 20081001, end: 20081201
  2. LEXAPRO [Concomitant]
     Indication: DEPRESSION
     Dosage: 10 MG, UNK
  3. LORAZEPAM [Concomitant]
     Indication: DEPRESSION
  4. MOTRIN [Concomitant]
     Indication: PAIN
  5. YASMIN [Suspect]
     Indication: MENSTRUATION IRREGULAR
     Dosage: UNK
     Dates: start: 20061001, end: 20070701
  6. IBUPROFEN (ADVIL) [Concomitant]
     Indication: PAIN

REACTIONS (10)
  - INJURY [None]
  - PAIN [None]
  - ANXIETY [None]
  - ANHEDONIA [None]
  - CHOLELITHIASIS [None]
  - CHOLECYSTITIS CHRONIC [None]
  - GALLBLADDER DISORDER [None]
  - DEFORMITY [None]
  - PAIN IN EXTREMITY [None]
  - SENSATION OF HEAVINESS [None]
